FAERS Safety Report 13618181 (Version 1)
Quarter: 2017Q2

REPORT INFORMATION
  Report Type: Report from Study
  Country: US (occurrence: US)
  Receive Date: 20170606
  Receipt Date: 20170606
  Transmission Date: 20170830
  Serious: Yes (Disabling, Other)
  Sender: FDA-Public Use
  Company Number: US-TAKEDA-2017TUS012260

PATIENT
  Sex: Male
  Weight: 80.73 kg

DRUGS (1)
  1. ALOGLIPTIN, METFORMIN [Suspect]
     Active Substance: ALOGLIPTIN BENZOATE\METFORMIN HYDROCHLORIDE
     Indication: TYPE 2 DIABETES MELLITUS
     Dosage: 12.5/1000MG, BID
     Route: 048
     Dates: start: 2012

REACTIONS (3)
  - Drug dose omission [Unknown]
  - Fracture [Unknown]
  - Benign bone neoplasm [Unknown]
